FAERS Safety Report 5141906-8 (Version None)
Quarter: 2006Q4

REPORT INFORMATION
  Report Type: 
  Country: None (occurrence: None)
  Receive Date: 20060919
  Receipt Date: 20060808
  Transmission Date: 20070319
  Serious: No
  Sender: FDA-Public Use
  Company Number: 2006US001196

PATIENT
  Age: 84 Year
  Sex: Female
  Weight: 46.3 kg

DRUGS (7)
  1. VESICARE [Suspect]
     Indication: INCONTINENCE
     Dosage: 5 MG, QOD, ORAL
     Route: 048
     Dates: start: 20060520
  2. DIGOXIN [Concomitant]
  3. ALLOPRIL [Concomitant]
  4. LIPITOR [Concomitant]
  5. VEROLIN (SERRAPEPTASE) [Concomitant]
  6. FUROSEMIDE (FUROSEMIDE SODIUM) [Concomitant]
  7. NORTRIPTYLINE HCL [Concomitant]

REACTIONS (4)
  - CONSTIPATION [None]
  - DEHYDRATION [None]
  - DRY MOUTH [None]
  - DRY THROAT [None]
